FAERS Safety Report 7723808-3 (Version None)
Quarter: 2011Q3

REPORT INFORMATION
  Report Type: 
  Country: None (occurrence: None)
  Receive Date: 20110901
  Receipt Date: 20110825
  Transmission Date: 20111222
  Serious: Yes (Hospitalization, Other)
  Sender: FDA-Public Use
  Company Number: DE-BAYER-2011-040554

PATIENT
  Age: 79 Year
  Sex: Male
  Weight: 67 kg

DRUGS (23)
  1. NEXAVAR [Suspect]
     Dosage: 400 MG, BID
     Route: 048
     Dates: start: 20101215, end: 20110111
  2. BISOPROLOL FUMARATE [Concomitant]
     Indication: HYPERTENSION
     Dosage: DAILY DOSE 5 MG
     Route: 048
     Dates: start: 19950101
  3. IMODIUM [LOPERAMIDE,SIMETICONE] [Concomitant]
     Indication: DIARRHOEA
     Route: 048
     Dates: start: 20110402
  4. NEXAVAR [Suspect]
     Dosage: 400 MG, BID
     Route: 048
     Dates: start: 20110111, end: 20110211
  5. OLMESARTAN MEDOXOMIL [Concomitant]
     Indication: HYPERTENSION
     Dosage: DAILY DOSE 20 MG
     Route: 048
     Dates: start: 19950101
  6. GLIMEPIRIDE [Concomitant]
     Dosage: 0.5 MG, QD
     Dates: start: 19950101, end: 20110101
  7. CALCIUM CARBONATE [Concomitant]
     Dosage: 1200 MG, QD
     Dates: start: 20110114, end: 20110131
  8. NEXAVAR [Suspect]
     Indication: THYROID CANCER
     Dosage: 400 MG, BID
     Route: 048
     Dates: start: 20101109, end: 20101215
  9. SIMVASTATIN [Concomitant]
     Indication: HYPERLIPIDAEMIA
     Dosage: DAILY DOSE 20 MG
     Route: 048
     Dates: start: 19950101
  10. NOVAMINSULFON [Concomitant]
     Indication: BACK PAIN
     Dosage: 20 DROPS MAX 1X/WEEK
     Route: 048
     Dates: start: 20070101
  11. VALORON [TILIDINE HYDROCHLORIDE] [Concomitant]
     Indication: ARTHRALGIA
  12. NEXAVAR [Suspect]
     Dosage: 400 MG, BID
     Route: 048
     Dates: start: 20110407, end: 20110512
  13. DULCOLAX [Concomitant]
     Indication: CONSTIPATION
     Dosage: PRN SUPP
     Dates: start: 20110122
  14. ATACAND [Concomitant]
     Indication: HYPERTENSION
     Dosage: 8 MG, QD
     Dates: start: 20110501
  15. NEXAVAR [Suspect]
     Dosage: 400 MG, BID
     Route: 048
     Dates: start: 20110211, end: 20110310
  16. PANTOPRAZOLE [Concomitant]
     Indication: ABDOMINAL PAIN UPPER
     Dosage: DAILY DOSE 40 MG
     Route: 048
     Dates: start: 19930101
  17. GLIMEPIRIDE [Concomitant]
     Indication: DIABETES MELLITUS
     Dosage: DAILY DOSE 2 MG
     Route: 048
     Dates: start: 20110101
  18. NEXAVAR [Suspect]
     Dosage: 400 MG, BID
     Route: 048
     Dates: start: 20110310, end: 20110407
  19. AMLODIPINE [Concomitant]
     Indication: HYPERTENSION
     Dosage: DAILY DOSE 5 MG
     Route: 048
     Dates: start: 19950101
  20. NOVAMINSULFON [Concomitant]
     Indication: ARTHRALGIA
  21. VALORON [TILIDINE HYDROCHLORIDE] [Concomitant]
     Indication: BACK PAIN
     Dosage: TOTAL DAILY DOSE 20 GTT PRN
     Route: 048
     Dates: start: 20070101
  22. LEVOTHYROXINE SODIUM [Concomitant]
     Indication: HYPOTHYROIDISM
     Dosage: DAILY DOSE 150 ?G
     Route: 048
     Dates: start: 20090401
  23. CALCIUM CARBONATE [Concomitant]
     Indication: PROPHYLAXIS
     Dosage: DAILY DOSE 2400 MG
     Route: 048
     Dates: start: 20110201, end: 20110407

REACTIONS (4)
  - LEUKOPENIA [None]
  - SPINAL FRACTURE [None]
  - ACUTE MYELOID LEUKAEMIA [None]
  - LYMPHOPENIA [None]
